FAERS Safety Report 7062209-0 (Version None)
Quarter: 2010Q4

REPORT INFORMATION
  Report Type: 
  Country: None (occurrence: None)
  Receive Date: 20101026
  Receipt Date: 20101020
  Transmission Date: 20110411
  Serious: Yes (Hospitalization, Other)
  Sender: FDA-Public Use
  Company Number: CA-ABBOTT-10P-028-0675327-00

PATIENT
  Sex: Female

DRUGS (11)
  1. HUMIRA [Suspect]
     Indication: CROHN'S DISEASE
     Route: 058
     Dates: start: 20071025, end: 20100908
  2. HUMIRA [Suspect]
     Dates: start: 20101001, end: 20101001
  3. HUMIRA [Suspect]
     Dates: start: 20101008, end: 20101008
  4. EFFEXOR [Concomitant]
     Indication: DEPRESSION
     Route: 048
  5. CELEBREX [Concomitant]
     Indication: PRODUCT USED FOR UNKNOWN INDICATION
     Dosage: 200 BID
     Route: 048
     Dates: end: 20100929
  6. TYLENOL (CAPLET) [Concomitant]
     Indication: PRODUCT USED FOR UNKNOWN INDICATION
     Route: 048
     Dates: start: 20100930
  7. PALAFER [Concomitant]
     Indication: PRODUCT USED FOR UNKNOWN INDICATION
     Route: 048
  8. DESYREL [Concomitant]
     Indication: INSOMNIA
     Dosage: AT BEDTIME
     Route: 048
  9. ZOPICLONE [Concomitant]
     Indication: INSOMNIA
     Dosage: AT BEDTIME
     Route: 048
  10. ACLASTA [Concomitant]
     Indication: OSTEOPOROSIS
     Dosage: YEARLY
     Route: 042
  11. METHOTREXATE [Concomitant]
     Indication: PRODUCT USED FOR UNKNOWN INDICATION
     Dosage: 5 TABS EVERY WEEK
     Route: 048
     Dates: start: 20100601

REACTIONS (5)
  - ABDOMINAL ABSCESS [None]
  - CROHN'S DISEASE [None]
  - FISTULA [None]
  - GASTROINTESTINAL HAEMORRHAGE [None]
  - HAEMOGLOBIN DECREASED [None]
